FAERS Safety Report 4525902-7 (Version None)
Quarter: 2004Q4

REPORT INFORMATION
  Report Type: 
  Country: None (occurrence: None)
  Receive Date: 20041213
  Receipt Date: 20041129
  Transmission Date: 20050328
  Serious: Yes (Other)
  Sender: FDA-Public Use
  Company Number: PHBS2004US16262

PATIENT
  Age: 16 Year
  Sex: Female

DRUGS (6)
  1. CYCLOSPORINE [Suspect]
     Indication: RENAL TRANSPLANT
     Dosage: 360 MG/D
  2. PREDNISONE [Suspect]
     Indication: RENAL TRANSPLANT
     Dosage: 10 MG/D
  3. AZATHIOPRINE [Concomitant]
     Dosage: 50 MG/D
  4. ENALAPRIL [Concomitant]
     Dosage: 5 MG/D
  5. NIFEDIPINE [Concomitant]
     Dosage: 30 MG/D
  6. PRAZOSIN HCL [Concomitant]
     Dosage: 9 MG/D

REACTIONS (3)
  - CSF PRESSURE INCREASED [None]
  - INTRACRANIAL PRESSURE INCREASED [None]
  - PAPILLOEDEMA [None]
